FAERS Safety Report 6689311-7 (Version None)
Quarter: 2010Q2

REPORT INFORMATION
  Report Type: 
  Country: None (occurrence: None)
  Receive Date: 20100420
  Receipt Date: 20100407
  Transmission Date: 20101027
  Serious: Yes (Hospitalization, Other)
  Sender: FDA-Public Use
  Company Number: US-ELI_LILLY_AND_COMPANY-US201002004615

PATIENT
  Sex: Male

DRUGS (2)
  1. CYMBALTA [Suspect]
     Dosage: UNK, UNKNOWN
     Route: 065
     Dates: start: 20091201
  2. LEXAPRO [Concomitant]
     Dates: start: 20091201

REACTIONS (3)
  - CRIME [None]
  - MENTAL DISORDER [None]
  - SUICIDAL IDEATION [None]
